FAERS Safety Report 24203664 (Version 4)
Quarter: 2024Q4

REPORT INFORMATION
  Report Type: Spontaneous
  Country: US (occurrence: US)
  Receive Date: 20240813
  Receipt Date: 20241106
  Transmission Date: 20250115
  Serious: Yes (Other)
  Sender: BRISTOL-MYERS SQUIBB COMPANY
  Company Number: US-BRISTOL-MYERS SQUIBB COMPANY-2024-125598

PATIENT
  Age: 84 Year
  Sex: Male

DRUGS (1)
  1. POMALYST [Suspect]
     Active Substance: POMALIDOMIDE
     Indication: Plasma cell myeloma
     Dosage: QD FOR 21 DAYS ON AND 7 DAYS OFF?21 ON AND 7 OFF
     Route: 048

REACTIONS (4)
  - Heart rate decreased [Unknown]
  - Constipation [Unknown]
  - Dysuria [Unknown]
  - Sinusitis [Unknown]
